FAERS Safety Report 17963558 (Version 1)
Quarter: 2020Q2

REPORT INFORMATION
  Report Type: Spontaneous
  Country: CN (occurrence: CN)
  Receive Date: 20200630
  Receipt Date: 20200630
  Transmission Date: 20200714
  Serious: Yes (Other)
  Sender: FDA-Public Use
  Company Number: CN-SA-2020SA165063

PATIENT

DRUGS (12)
  1. CARMUSTINE. [Suspect]
     Active Substance: CARMUSTINE
     Indication: PREMEDICATION
     Dosage: 250 MG, QD, 7 D BEFORE TRANSPLANTATION
  2. METHOTREXATE. [Suspect]
     Active Substance: METHOTREXATE
     Indication: PROPHYLAXIS AGAINST GRAFT VERSUS HOST DISEASE
     Dosage: 15 MG/M2; INFUSED 1 DAY AFTER TRANSPLANTATION
  3. METHOTREXATE. [Suspect]
     Active Substance: METHOTREXATE
     Dosage: 10 MG/M2; INFUSED ON 3, 6 AND 11 DAY AFTER TRANSPLANTATION
  4. CYTARABINE. [Suspect]
     Active Substance: CYTARABINE
     Indication: PREMEDICATION
     Dosage: 4 G/M2, QD; 6 TO 5D BEFORE TRANSPLANTATION
  5. ANTI-THYMOCYTE GLOBULIN (RABBIT) NOS [Suspect]
     Active Substance: LAPINE T-LYMPHOCYTE IMMUNE GLOBULIN
     Dosage: 3.5 MG /KG QD, 2 DAYS BEFORE TRANSPLANTATION,
  6. CYCLOSPORIN A [Suspect]
     Active Substance: CYCLOSPORINE
     Indication: PROPHYLAXIS AGAINST GRAFT VERSUS HOST DISEASE
     Dosage: 2 MG/KG, Q12H, STARTING 10 D BEFORE TRANSPLANTATION
  7. ANTI-THYMOCYTE GLOBULIN (RABBIT) NOS [Suspect]
     Active Substance: LAPINE T-LYMPHOCYTE IMMUNE GLOBULIN
     Indication: PREMEDICATION
     Dosage: 1.5MG /KG QD, 5D BEFORE TRANSPLANTATION,
  8. BUSULFAN. [Suspect]
     Active Substance: BUSULFAN
     Indication: PREMEDICATION
     Dosage: 0.8 MG/KG, Q6H; 10 TO 8D BEFORE TRANSPLANTATION
  9. G-CSF [Concomitant]
     Active Substance: GRANULOCYTE COLONY-STIMULATING FACTOR NOS
     Dosage: 5-10 MG/KG
     Route: 058
  10. ANTI-THYMOCYTE GLOBULIN (RABBIT) NOS [Suspect]
     Active Substance: LAPINE T-LYMPHOCYTE IMMUNE GLOBULIN
     Dosage: 2.5 MG /KG QD, 4 TO 3D BEFORE TRANSPLANTATION,
  11. CYCLOPHOSPHAMIDE. [Suspect]
     Active Substance: CYCLOPHOSPHAMIDE
     Indication: PREMEDICATION
     Dosage: 50 MG/KG, QD; 4 TO 3D BEFORE TRANSPLANTATION
  12. MYCOPHENOLATE MOFETIL. [Suspect]
     Active Substance: MYCOPHENOLATE MOFETIL
     Indication: PROPHYLAXIS AGAINST GRAFT VERSUS HOST DISEASE
     Dosage: 500 MG, Q12H, STARTING 10D BEFORE TRANSPLANTATION,

REACTIONS (6)
  - Cytomegalovirus viraemia [Unknown]
  - Cystitis haemorrhagic [Recovering/Resolving]
  - Fungal infection [Unknown]
  - Off label use [Unknown]
  - Pneumonia [Unknown]
  - Epstein-Barr viraemia [Unknown]
